FAERS Safety Report 7555101-6 (Version None)
Quarter: 2011Q2

REPORT INFORMATION
  Report Type: 
  Country: None (occurrence: None)
  Receive Date: 20110610
  Receipt Date: 20110601
  Transmission Date: 20111010
  Serious: Yes (Other)
  Sender: FDA-Public Use
  Company Number: 1000021519

PATIENT
  Age: 45 Year
  Sex: Female

DRUGS (4)
  1. ESCITALOPRAM [Suspect]
     Dosage: 20 MG (20 MG, 1 IN 1 D), ORAL
     Route: 048
     Dates: start: 20110101, end: 20110101
  2. XANAX [Concomitant]
  3. CALCIUM D3 (CALCIUM D3 /01483701/) (CALCIUM D3 /01483701/) [Concomitant]
  4. ZOLPIDEM [Concomitant]

REACTIONS (5)
  - INTENTIONAL OVERDOSE [None]
  - LOSS OF CONSCIOUSNESS [None]
  - TONGUE DISORDER [None]
  - SUICIDE ATTEMPT [None]
  - GRAND MAL CONVULSION [None]
